FAERS Safety Report 10055912 (Version 1)
Quarter: 2014Q2

REPORT INFORMATION
  Report Type: Spontaneous
  Country: US (occurrence: None)
  Receive Date: 20140402
  Receipt Date: 20140402
  Transmission Date: 20141212
  Serious: Yes (Other)
  Sender: FDA-Public Use
  Company Number: None

PATIENT
  Age: 50 Year
  Sex: Male

DRUGS (8)
  1. REBIF [Suspect]
     Indication: MULTIPLE SCLEROSIS
     Route: 058
     Dates: start: 20111006
  2. CENTRUM SILVER [Concomitant]
  3. DULOXETINE [Concomitant]
  4. FOLIC ACID [Concomitant]
  5. GLIPIZIDE [Concomitant]
  6. KLONOPIN [Concomitant]
  7. METFORMIN [Concomitant]
  8. ZEPREXA [Concomitant]

REACTIONS (1)
  - Hepatic enzyme increased [None]
